FAERS Safety Report 8493851 (Version 3)
Quarter: 2013Q1

REPORT INFORMATION
  Report Type: Report from Study
  Country: GB (occurrence: GB)
  Receive Date: 20120404
  Receipt Date: 20130320
  Transmission Date: 20140127
  Serious: Yes (Hospitalization)
  Sender: FDA-Public Use
  Company Number: GB-ALEXION PHARMACEUTICALS INC.-A201200344

PATIENT
  Age: 17 Year
  Sex: Male

DRUGS (6)
  1. SOLIRIS [Suspect]
     Indication: PAROXYSMAL NOCTURNAL HAEMOGLOBINURIA
     Dosage: INITIATION PHASE
     Route: 042
     Dates: start: 20081106
  2. SOLIRIS [Suspect]
     Dosage: 1200 MG, Q2W
     Route: 042
  3. SOLIRIS [Suspect]
     Dosage: 900 MG, Q2W
     Route: 042
  4. RIFAMPICIN [Concomitant]
     Indication: TUBERCULOSIS
     Dosage: UNK
     Route: 048
  5. CYCLOSPORIN [Concomitant]
     Indication: TUBERCULOSIS
     Dosage: UNK
     Route: 048
  6. TINZAPARIN [Concomitant]
     Indication: THROMBOSIS
     Dosage: UNK
     Route: 058

REACTIONS (4)
  - Splenic vein thrombosis [Not Recovered/Not Resolved]
  - Hepatic vein thrombosis [Not Recovered/Not Resolved]
  - Drug level decreased [Not Recovered/Not Resolved]
  - Incorrect dose administered [Not Recovered/Not Resolved]
